FAERS Safety Report 22018696 (Version 1)
Quarter: 2023Q1

REPORT INFORMATION
  Report Type: Spontaneous
  Country: US (occurrence: US)
  Receive Date: 20230222
  Receipt Date: 20230222
  Transmission Date: 20230418
  Serious: No
  Sender: FDA-Public Use
  Company Number: US-SANOFI-01497252

PATIENT

DRUGS (2)
  1. HECTOROL [Suspect]
     Active Substance: DOXERCALCIFEROL
     Dosage: UNK
     Route: 041
  2. SODIUM CHLORIDE [Concomitant]
     Active Substance: SODIUM CHLORIDE

REACTIONS (1)
  - Infusion site pain [Unknown]
